FAERS Safety Report 17991322 (Version 4)
Quarter: 2020Q4

REPORT INFORMATION
  Report Type: Report from Study
  Country: None (occurrence: US)
  Receive Date: 20200708
  Receipt Date: 20201015
  Transmission Date: 20210113
  Serious: Yes (Hospitalization)
  Sender: FDA-Public Use
  Company Number: US-ABBVIE-20K-163-3309551-00

PATIENT
  Sex: Female

DRUGS (2)
  1. HUMIRA [Suspect]
     Active Substance: ADALIMUMAB
     Indication: PSORIATIC ARTHROPATHY
     Route: 058
     Dates: start: 20190927, end: 202006
  2. HUMIRA [Suspect]
     Active Substance: ADALIMUMAB
     Route: 058
     Dates: start: 202007

REACTIONS (13)
  - Loss of personal independence in daily activities [Recovering/Resolving]
  - Hiatus hernia [Unknown]
  - Depression [Unknown]
  - Nasal congestion [Not Recovered/Not Resolved]
  - Diaphragmatic injury [Unknown]
  - Impaired self-care [Recovering/Resolving]
  - Mobility decreased [Recovering/Resolving]
  - Gait disturbance [Unknown]
  - Anxiety [Unknown]
  - Weight increased [Unknown]
  - Post procedural pulmonary embolism [Recovering/Resolving]
  - Asthenia [Unknown]
  - Psoriatic arthropathy [Recovering/Resolving]

NARRATIVE: CASE EVENT DATE: 2019
